FAERS Safety Report 17634638 (Version 6)
Quarter: 2020Q4

REPORT INFORMATION
  Report Type: Report from Study
  Country: US (occurrence: US)
  Receive Date: 20200407
  Receipt Date: 20201015
  Transmission Date: 20210113
  Serious: No
  Sender: FDA-Public Use
  Company Number: NVSC2020US093280

PATIENT
  Age: 56 Year
  Sex: Female

DRUGS (1)
  1. COSENTYX [Suspect]
     Active Substance: SECUKINUMAB
     Indication: PSORIASIS
     Dosage: 300 MG, QW FOR 5 WEEKS THEN Q4W
     Route: 058
     Dates: start: 20200401

REACTIONS (5)
  - Emotional distress [Unknown]
  - Hordeolum [Recovering/Resolving]
  - Malaise [Unknown]
  - Drug ineffective [Not Recovered/Not Resolved]
  - Back pain [Unknown]

NARRATIVE: CASE EVENT DATE: 20200408
